FAERS Safety Report 18660719 (Version 1)
Quarter: 2020Q4

REPORT INFORMATION
  Report Type: Report from Study
  Country: US (occurrence: US)
  Receive Date: 20201224
  Receipt Date: 20201224
  Transmission Date: 20210114
  Serious: Yes (Other)
  Sender: FDA-Public Use
  Company Number: US-TEVA-2020-US-1861190

PATIENT
  Age: 38 Year
  Sex: Male

DRUGS (2)
  1. COPAXONE [Suspect]
     Active Substance: GLATIRAMER ACETATE
     Dosage: 20 MILLIGRAM DAILY;
     Dates: start: 20200318
  2. COPAXONE [Suspect]
     Active Substance: GLATIRAMER ACETATE
     Dates: start: 2018

REACTIONS (18)
  - Injection site mass [Unknown]
  - Gait disturbance [Unknown]
  - Multiple sclerosis relapse [Recovered/Resolved]
  - Hypersensitivity [Unknown]
  - Hypoaesthesia [Unknown]
  - Asthenia [Unknown]
  - Hemiparesis [Unknown]
  - Dysarthria [Unknown]
  - Lipodystrophy acquired [Unknown]
  - Wheelchair user [Unknown]
  - Wheezing [Unknown]
  - Dyspnoea [Unknown]
  - Asthma [Unknown]
  - Muscular weakness [Unknown]
  - Muscle spasms [Unknown]
  - Optic neuritis [Unknown]
  - Myalgia [Unknown]
  - Visual impairment [Unknown]

NARRATIVE: CASE EVENT DATE: 2020
